FAERS Safety Report 5816194-7 (Version None)
Quarter: 2008Q3

REPORT INFORMATION
  Report Type: 
  Country: None (occurrence: None)
  Receive Date: 20080721
  Receipt Date: 20080716
  Transmission Date: 20090109
  Serious: Yes (Other)
  Sender: FDA-Public Use
  Company Number: B0509191A

PATIENT
  Age: 60 Year
  Sex: Male

DRUGS (3)
  1. COREG CR [Suspect]
     Route: 048
  2. ZESTRIL [Suspect]
  3. AGGRENOX [Suspect]

REACTIONS (1)
  - CEREBROVASCULAR ACCIDENT [None]
